FAERS Safety Report 10945709 (Version 2)
Quarter: 2015Q2

REPORT INFORMATION
  Report Type: Spontaneous
  Country: JP (occurrence: JP)
  Receive Date: 20150323
  Receipt Date: 20150504
  Transmission Date: 20150821
  Serious: Yes (Hospitalization)
  Sender: FDA-Public Use
  Company Number: JP-SA-2015SA033128

PATIENT
  Age: 39 Year
  Sex: Female
  Weight: 56.65 kg

DRUGS (4)
  1. SANIKLEAN E3 HAND SANITIZER [Suspect]
     Active Substance: ALCOHOL
     Indication: BRONCHITIS
     Route: 048
     Dates: start: 20150219, end: 20150221
  2. CLARITHROMYCIN. [Suspect]
     Active Substance: CLARITHROMYCIN
     Route: 048
     Dates: start: 20150219, end: 20150221
  3. SANIKLEAN E3 HAND SANITIZER [Suspect]
     Active Substance: ALCOHOL
     Indication: RHINITIS ALLERGIC
     Route: 048
     Dates: start: 20150219, end: 20150221
  4. CARBOCISTEINE [Suspect]
     Active Substance: CARBOCYSTEINE
     Route: 048
     Dates: start: 20150219, end: 20150221

REACTIONS (6)
  - Drug-induced liver injury [Recovered/Resolved]
  - Diarrhoea [Recovering/Resolving]
  - Abdominal pain upper [Recovering/Resolving]
  - Vomiting [Recovering/Resolving]
  - Hepatic enzyme increased [Recovering/Resolving]
  - Nausea [Recovering/Resolving]

NARRATIVE: CASE EVENT DATE: 20150221
